FAERS Safety Report 21761560 (Version 1)
Quarter: 2022Q4

REPORT INFORMATION
  Report Type: Report from Study
  Country: US (occurrence: US)
  Receive Date: 20221221
  Receipt Date: 20221221
  Transmission Date: 20230112
  Serious: Yes (Other)
  Sender: FDA-Public Use
  Company Number: US-BEH-2022153466

PATIENT
  Age: 50 Year
  Sex: Female

DRUGS (1)
  1. HUMAN IMMUNOGLOBULIN G [Suspect]
     Active Substance: HUMAN IMMUNOGLOBULIN G
     Indication: Dermatomyositis
     Dosage: UNK
     Route: 042
     Dates: start: 20211101, end: 20211101

REACTIONS (16)
  - Drug ineffective for unapproved indication [Unknown]
  - Drug intolerance [Unknown]
  - Vein rupture [Unknown]
  - Infusion site bruising [Unknown]
  - Infusion site pain [Unknown]
  - Hypersensitivity [Unknown]
  - Headache [Unknown]
  - Nausea [Unknown]
  - Fatigue [Unknown]
  - Malaise [Unknown]
  - Palpitations [Unknown]
  - Tachycardia [Unknown]
  - Respiration abnormal [Unknown]
  - Painful respiration [Unknown]
  - No adverse event [Unknown]
  - Off label use [Unknown]
